FAERS Safety Report 8919995 (Version 3)
Quarter: 2012Q4

REPORT INFORMATION
  Report Type: 
  Country: US (occurrence: US)
  Receive Date: 20121121
  Receipt Date: 20121212
  Transmission Date: 20130627
  Serious: Yes (Hospitalization)
  Sender: FDA-Public Use
  Company Number: US-AMGEN-USASP2012068975

PATIENT
  Age: 86 Year
  Sex: Female
  Weight: 58.96 kg

DRUGS (4)
  1. PROLIA [Suspect]
     Indication: OSTEOPOROSIS POSTMENOPAUSAL
     Dosage: 60 mg, q6mo
     Route: 058
     Dates: start: 20120929
  2. KEPPRA [Concomitant]
     Dosage: 500 mg, qd
     Route: 048
  3. PROZAC [Concomitant]
     Dosage: 20 mg, qd
     Route: 048
  4. PHENOBARBITAL [Concomitant]
     Dosage: 34.2 mg, tid

REACTIONS (14)
  - Urinary incontinence [Recovered/Resolved]
  - Confusional state [Recovered/Resolved]
  - Incoherent [Unknown]
  - Asthenia [Unknown]
  - Muscular weakness [Unknown]
  - Tremor [Unknown]
  - Hypersensitivity [Not Recovered/Not Resolved]
  - Pruritus generalised [Not Recovered/Not Resolved]
  - Rash [Recovered/Resolved]
  - Headache [Unknown]
  - Arthritis [Unknown]
  - Back pain [Unknown]
  - Hearing impaired [Unknown]
  - Hypertension [Unknown]
